FAERS Safety Report 25119548 (Version 3)
Quarter: 2025Q2

REPORT INFORMATION
  Report Type: Spontaneous
  Country: RU (occurrence: RU)
  Receive Date: 20250325
  Receipt Date: 20250425
  Transmission Date: 20250716
  Serious: Yes (Death, Other)
  Sender: BEIGENE
  Company Number: RU-BEIGENE-BGN-2025-004575

PATIENT
  Age: 78 Year

DRUGS (1)
  1. BRUKINSA [Suspect]
     Active Substance: ZANUBRUTINIB
     Indication: Mantle cell lymphoma
     Dosage: 320 MILLIGRAM, QD

REACTIONS (4)
  - Death [Fatal]
  - Bacterial toxaemia [Unknown]
  - White blood cell count decreased [Unknown]
  - Infection [Recovered/Resolved]
